FAERS Safety Report 24825823 (Version 1)
Quarter: 2025Q1

REPORT INFORMATION
  Report Type: Spontaneous
  Country: US (occurrence: US)
  Receive Date: 20250109
  Receipt Date: 20250109
  Transmission Date: 20250409
  Serious: No
  Sender: PFIZER
  Company Number: US-PFIZER INC-202500002763

PATIENT
  Age: 50 Year
  Sex: Female

DRUGS (1)
  1. VELSIPITY [Suspect]
     Active Substance: ETRASIMOD ARGININE
     Indication: Colitis ulcerative
     Dosage: TAKE 2 MG BY MOUTH DAILY - ORAL
     Route: 048
     Dates: start: 202405

REACTIONS (7)
  - Condition aggravated [Not Recovered/Not Resolved]
  - Gastrooesophageal reflux disease [Unknown]
  - Arthralgia [Recovered/Resolved]
  - Dizziness [Unknown]
  - Vision blurred [Unknown]
  - Eye swelling [Unknown]
  - Hot flush [Unknown]
